FAERS Safety Report 20482354 (Version 3)
Quarter: 2022Q1

REPORT INFORMATION
  Report Type: Report from Study
  Country: CA (occurrence: CA)
  Receive Date: 20220217
  Receipt Date: 20220322
  Transmission Date: 20220423
  Serious: Yes (Other)
  Sender: FDA-Public Use
  Company Number: CA-NOVARTISPH-NVSC2021CA281068

PATIENT
  Age: 61 Year
  Sex: Female

DRUGS (2)
  1. ERELZI [Suspect]
     Active Substance: ETANERCEPT-SZZS
     Indication: Rheumatoid arthritis
     Dosage: 25 MG, BIW (TWICE WEEKLY)
     Route: 058
     Dates: start: 20211206
  2. ERELZI [Suspect]
     Active Substance: ETANERCEPT-SZZS
     Dosage: 20 MG, BIW (TWICE WEEKLY)
     Route: 058
     Dates: start: 20220211

REACTIONS (8)
  - Cataract [Unknown]
  - Feeling abnormal [Unknown]
  - Pain in extremity [Unknown]
  - Limb discomfort [Unknown]
  - Abdominal pain upper [Unknown]
  - Visual impairment [Unknown]
  - Injection site pain [Unknown]
  - Therapeutic product effect decreased [Unknown]

NARRATIVE: CASE EVENT DATE: 20211206
